FAERS Safety Report 25996397 (Version 1)
Quarter: 2025Q4

REPORT INFORMATION
  Report Type: Spontaneous
  Country: EU (occurrence: EU)
  Receive Date: 20251104
  Receipt Date: 20251104
  Transmission Date: 20260118
  Serious: Yes (Hospitalization, Other)
  Sender: BAYER HEALTHCARE PHARMACEUTICALS INC.
  Company Number: EU-BAYER-2019-211861

PATIENT
  Age: 55 Year
  Sex: Female

DRUGS (11)
  1. CIPROFLOXACIN [Suspect]
     Active Substance: CIPROFLOXACIN
     Indication: Fusobacterium infection
     Dosage: UNK
  2. CIPROFLOXACIN [Suspect]
     Active Substance: CIPROFLOXACIN
     Indication: Pneumonia
  3. PIPERACILLIN AND TAZOBACTAM [Suspect]
     Active Substance: PIPERACILLIN SODIUM\TAZOBACTAM SODIUM
     Indication: Fusobacterium infection
     Dosage: UNK
  4. PIPERACILLIN AND TAZOBACTAM [Suspect]
     Active Substance: PIPERACILLIN SODIUM\TAZOBACTAM SODIUM
     Indication: Pneumonia
  5. LEVOFLOXACIN [Suspect]
     Active Substance: LEVOFLOXACIN
     Indication: Fusobacterium infection
     Dosage: UNK
  6. LEVOFLOXACIN [Suspect]
     Active Substance: LEVOFLOXACIN
     Indication: Pneumonia
  7. CEFOTAXIME SODIUM [Suspect]
     Active Substance: CEFOTAXIME SODIUM
     Indication: Bacterial infection
     Dosage: UNK
  8. ALBENDAZOLE [Suspect]
     Active Substance: ALBENDAZOLE
     Indication: Product used for unknown indication
     Dosage: UNK
  9. METRONIDAZOLE [Suspect]
     Active Substance: METRONIDAZOLE
     Indication: Bacterial infection
     Dosage: UNK
  10. RIFAMPIN [Concomitant]
     Active Substance: RIFAMPIN
     Indication: Bacterial infection
     Dosage: UNK
     Route: 048
  11. TIGECYCLINE [Concomitant]
     Active Substance: TIGECYCLINE
     Indication: Bacterial infection
     Dosage: UNK

REACTIONS (3)
  - Drug ineffective [Recovering/Resolving]
  - Pneumonia [Recovering/Resolving]
  - Anaemia [Unknown]
